FAERS Safety Report 9433904 (Version 1)
Quarter: 2013Q3

REPORT INFORMATION
  Report Type: Spontaneous
  Country: DE (occurrence: DE)
  Receive Date: 20130801
  Receipt Date: 20130801
  Transmission Date: 20140515
  Serious: Yes (Other)
  Sender: FDA-Public Use
  Company Number: GXKR2013DE002525

PATIENT
  Sex: 0

DRUGS (2)
  1. CLARITHROMYCIN [Suspect]
     Dosage: UKN
     Route: 063
  2. AMOXICILLIN [Suspect]
     Dosage: UNK UKN, UNK
     Route: 063

REACTIONS (1)
  - Rash [Unknown]
